FAERS Safety Report 7700264-2 (Version None)
Quarter: 2011Q3

REPORT INFORMATION
  Report Type: 
  Country: None (occurrence: None)
  Receive Date: 20110822
  Receipt Date: 20110812
  Transmission Date: 20111222
  Serious: Yes (Hospitalization)
  Sender: FDA-Public Use
  Company Number: US-JNJFOC-20110607354

PATIENT
  Sex: Male
  Weight: 82.5 kg

DRUGS (6)
  1. PREDNISONE [Suspect]
     Route: 065
     Dates: start: 20110311
  2. MEGESTROL ACETATE [Concomitant]
     Indication: NAUSEA
     Route: 065
     Dates: start: 20110423, end: 20110423
  3. PREDNISONE [Suspect]
     Indication: PROSTATE CANCER METASTATIC
     Route: 065
     Dates: start: 20110502
  4. SODIUM CHLORIDE [Concomitant]
     Indication: NAUSEA
     Route: 065
     Dates: start: 20110421, end: 20110423
  5. ABIRATERONE ACETATE [Suspect]
     Route: 048
  6. ABIRATERONE ACETATE [Suspect]
     Indication: PROSTATE CANCER METASTATIC
     Route: 048
     Dates: start: 20110311, end: 20110506

REACTIONS (1)
  - NAUSEA [None]
